FAERS Safety Report 8579283-2 (Version None)
Quarter: 2012Q3

REPORT INFORMATION
  Report Type: 
  Country: None (occurrence: None)
  Receive Date: 20120808
  Receipt Date: 20120802
  Transmission Date: 20120928
  Serious: Yes (Other)
  Sender: FDA-Public Use
  Company Number: US-ROCHE-1097278

PATIENT
  Age: 51 Year
  Sex: Female

DRUGS (2)
  1. TYKERB [Concomitant]
     Indication: BREAST CANCER METASTATIC
     Route: 048
  2. HERCEPTIN [Suspect]
     Indication: BREAST CANCER METASTATIC
     Route: 042

REACTIONS (1)
  - NERVOUS SYSTEM DISORDER [None]
